FAERS Safety Report 4716458-4 (Version None)
Quarter: 2005Q3

REPORT INFORMATION
  Report Type: 
  Country: None (occurrence: None)
  Receive Date: 20050713
  Receipt Date: 20050627
  Transmission Date: 20060218
  Serious: Yes (Hospitalization)
  Sender: FDA-Public Use
  Company Number: 2005PL000051

PATIENT
  Age: 44 Year
  Sex: Female

DRUGS (3)
  1. AZATHIOPRINE [Suspect]
     Indication: CROHN'S DISEASE
     Dosage: PO
     Route: 048
  2. PREDNISOLONE [Concomitant]
  3. 5(PRIME)-ASA [Concomitant]

REACTIONS (2)
  - ARTHRALGIA [None]
  - SMALL INTESTINE CARCINOMA [None]
